FAERS Safety Report 8822166 (Version 2)
Quarter: 2013Q1

REPORT INFORMATION
  Report Type: Spontaneous
  Country: GB (occurrence: GB)
  Receive Date: 20121003
  Receipt Date: 20130128
  Transmission Date: 20140127
  Serious: Yes (Other)
  Sender: FDA-Public Use
  Company Number: GB-TEVA-360923ISR

PATIENT
  Sex: Female

DRUGS (2)
  1. LETROZOLE [Suspect]
     Indication: PRODUCT USED FOR UNKNOWN INDICATION
     Dosage: UNK
     Dates: start: 2011
  2. FOSAMAX [Suspect]
     Indication: PRODUCT USED FOR UNKNOWN INDICATION
     Dosage: UNK
     Route: 048
     Dates: start: 201108

REACTIONS (10)
  - Monoplegia [Unknown]
  - Bone pain [Not Recovered/Not Resolved]
  - Condition aggravated [Unknown]
  - Drug interaction [Not Recovered/Not Resolved]
  - Spinal compression fracture [Unknown]
  - Arthralgia [Not Recovered/Not Resolved]
  - Migraine [Unknown]
  - Myalgia [Not Recovered/Not Resolved]
  - Osteoporosis [Not Recovered/Not Resolved]
  - Aphasia [Unknown]
